FAERS Safety Report 19580819 (Version 1)
Quarter: 2021Q3

REPORT INFORMATION
  Report Type: Spontaneous
  Country: US (occurrence: US)
  Receive Date: 20210719
  Receipt Date: 20210719
  Transmission Date: 20211014
  Serious: Yes (Hospitalization)
  Sender: FDA-Public Use
  Company Number: None

PATIENT
  Sex: Female

DRUGS (1)
  1. ETOPOSIDE 50MG CAP [Suspect]
     Active Substance: ETOPOSIDE
     Indication: MALIGNANT PERITONEAL NEOPLASM
     Route: 048
     Dates: start: 20210617, end: 20210716

REACTIONS (2)
  - Therapy cessation [None]
  - Adverse drug reaction [None]
